FAERS Safety Report 5231037-0 (Version None)
Quarter: 2007Q1

REPORT INFORMATION
  Report Type: 
  Country: None (occurrence: None)
  Receive Date: 20070206
  Receipt Date: 20070131
  Transmission Date: 20070707
  Serious: Yes (Other)
  Sender: FDA-Public Use
  Company Number: SER/8/3883

PATIENT
  Sex: Male

DRUGS (1)
  1. PAROXETINE HCL [Suspect]
     Indication: MOOD SWINGS
     Route: 065
     Dates: start: 19950101

REACTIONS (14)
  - AGGRESSION [None]
  - ANGER [None]
  - ANXIETY [None]
  - DIZZINESS [None]
  - DRUG WITHDRAWAL SYNDROME [None]
  - DYSPNOEA [None]
  - EJACULATION DISORDER [None]
  - FLASHBACK [None]
  - HYPERHIDROSIS [None]
  - NIGHTMARE [None]
  - PANIC ATTACK [None]
  - STRESS [None]
  - SUICIDE ATTEMPT [None]
  - TREMOR [None]
